FAERS Safety Report 14668482 (Version 1)
Quarter: 2018Q1

REPORT INFORMATION
  Report Type: Spontaneous
  Country: CA (occurrence: CA)
  Receive Date: 20180322
  Receipt Date: 20180322
  Transmission Date: 20180509
  Serious: Yes (Disabling, Other)
  Sender: FDA-Public Use
  Company Number: CA-BAYER-2018-051602

PATIENT
  Age: 40 Year
  Sex: Female
  Weight: 135 kg

DRUGS (2)
  1. MIRENA [Suspect]
     Active Substance: LEVONORGESTREL
     Indication: CONTRACEPTION
     Dosage: 20 MCG/24HR, CONT
     Route: 015
  2. MIRENA [Suspect]
     Active Substance: LEVONORGESTREL
     Indication: CONTRACEPTION

REACTIONS (11)
  - Alopecia [Recovering/Resolving]
  - Breast pain [Recovering/Resolving]
  - Polymenorrhoea [Recovering/Resolving]
  - Weight increased [Recovering/Resolving]
  - Acne [Recovering/Resolving]
  - Abdominal pain lower [Recovering/Resolving]
  - Depression [Recovering/Resolving]
  - Nervousness [Recovering/Resolving]
  - Fatigue [Recovering/Resolving]
  - Mood altered [Recovering/Resolving]
  - Nausea [Recovering/Resolving]
